FAERS Safety Report 19382866 (Version 1)
Quarter: 2021Q2

REPORT INFORMATION
  Report Type: Spontaneous
  Country: US (occurrence: US)
  Receive Date: 20210607
  Receipt Date: 20210607
  Transmission Date: 20210717
  Serious: No
  Sender: FDA-Public Use
  Company Number: US-PERRIGO-21US005033

PATIENT
  Age: 51 Year
  Sex: Male
  Weight: 64.85 kg

DRUGS (1)
  1. ALBUTEROL SULFATE. [Suspect]
     Active Substance: ALBUTEROL SULFATE
     Indication: WHEEZING
     Dosage: 1 TO 8 PUFFS, PRN
     Route: 055
     Dates: start: 202003, end: 2020

REACTIONS (3)
  - Device delivery system issue [Recovered/Resolved]
  - Drug ineffective [Unknown]
  - Incorrect dose administered [Recovered/Resolved]

NARRATIVE: CASE EVENT DATE: 202003
